FAERS Safety Report 6322689-2 (Version None)
Quarter: 2009Q3

REPORT INFORMATION
  Report Type: 
  Country: None (occurrence: None)
  Receive Date: 20090824
  Receipt Date: 20090310
  Transmission Date: 20100115
  Serious: No
  Sender: FDA-Public Use
  Company Number: US-ABBOTT-09P-163-0562036-00

PATIENT
  Sex: Male

DRUGS (3)
  1. NIASPAN [Suspect]
     Indication: DRUG USE FOR UNKNOWN INDICATION
     Dates: start: 20081201, end: 20090201
  2. UNKNOWN [Concomitant]
     Indication: DEPRESSION
  3. UNKNOWN [Concomitant]
     Indication: HYPERTENSION

REACTIONS (1)
  - FLUSHING [None]
